FAERS Safety Report 25851678 (Version 1)
Quarter: 2025Q3

REPORT INFORMATION
  Report Type: Spontaneous
  Country: CN (occurrence: CN)
  Receive Date: 20250926
  Receipt Date: 20250926
  Transmission Date: 20251020
  Serious: Yes (Other)
  Sender: ALEXION PHARMACEUTICALS
  Company Number: CN-ASTRAZENECA-202509CHN021155CN

PATIENT
  Age: 76 Year
  Sex: Male
  Weight: 65 kg

DRUGS (1)
  1. BUDESONIDE [Suspect]
     Active Substance: BUDESONIDE
     Indication: Chronic obstructive pulmonary disease
     Dosage: 1 MILLIGRAM, BID
     Dates: start: 20250605, end: 20250906

REACTIONS (3)
  - Dyspnoea [Recovering/Resolving]
  - Flushing [Recovering/Resolving]
  - Wheezing [Unknown]

NARRATIVE: CASE EVENT DATE: 20250906
